FAERS Safety Report 6275632-9 (Version None)
Quarter: 2009Q3

REPORT INFORMATION
  Report Type: 
  Country: None (occurrence: None)
  Receive Date: 20090721
  Receipt Date: 20090716
  Transmission Date: 20100115
  Serious: No
  Sender: FDA-Public Use
  Company Number: US-B.I. PHARMACEUTICALS,INC./RIDGEFIELD-2009-BP-08492BP

PATIENT
  Age: 70 Year
  Sex: Male

DRUGS (1)
  1. ATROVENT HFA [Suspect]
     Dosage: 68 MCG
     Route: 055

REACTIONS (1)
  - DRY MOUTH [None]
